FAERS Safety Report 20534706 (Version 1)
Quarter: 2022Q1

REPORT INFORMATION
  Report Type: Other
  Country: IT (occurrence: IT)
  Receive Date: 20220302
  Receipt Date: 20220302
  Transmission Date: 20220423
  Serious: Yes (Death, Hospitalization, Other)
  Sender: FDA-Public Use
  Company Number: IT-MACLEODS PHARMACEUTICALS US LTD-MAC2022034557

PATIENT

DRUGS (45)
  1. LEVOFLOXACIN [Suspect]
     Active Substance: LEVOFLOXACIN
     Indication: Product used for unknown indication
     Dosage: 500 MILLIGRAM, QD
     Route: 048
     Dates: start: 20211114
  2. ACETAMINOPHEN [Suspect]
     Active Substance: ACETAMINOPHEN
     Indication: Haemorrhoids
     Dosage: 500 MILLIGRAM, QD; TABLET
     Route: 048
     Dates: start: 20211020, end: 20211020
  3. ACETAMINOPHEN [Suspect]
     Active Substance: ACETAMINOPHEN
     Indication: Contusion
     Dosage: 1 GRAM, QD; TABLET
     Route: 048
     Dates: start: 20211021, end: 20211114
  4. ACETAMINOPHEN [Suspect]
     Active Substance: ACETAMINOPHEN
     Dosage: 1 GRAM, QD
     Route: 042
     Dates: start: 20211025, end: 20211025
  5. ACETAMINOPHEN [Suspect]
     Active Substance: ACETAMINOPHEN
     Dosage: UNK UNK, QD; TABLET
     Route: 048
     Dates: start: 20211115, end: 20211115
  6. SIMVASTATIN [Suspect]
     Active Substance: SIMVASTATIN
     Indication: Dyslipidaemia
     Dosage: 20 MILLIGRAM, QD
     Route: 048
     Dates: start: 20150101, end: 20211116
  7. POSACONAZOLE [Suspect]
     Active Substance: POSACONAZOLE
     Indication: Prophylaxis
     Dosage: 100 MILLIGRAM, TID
     Route: 048
     Dates: start: 20210922, end: 20211114
  8. IMETELSTAT [Suspect]
     Active Substance: IMETELSTAT
     Indication: Product used for unknown indication
     Dosage: UNK
     Route: 065
  9. POTASSIUM CHLORIDE [Concomitant]
     Active Substance: POTASSIUM CHLORIDE
     Indication: Product used for unknown indication
     Dosage: 20 MILLIEQUIVALENT, QD
     Route: 042
     Dates: start: 20211118, end: 20211119
  10. TRAMADOL [Concomitant]
     Active Substance: TRAMADOL
     Indication: Haemorrhoids
     Dosage: 100 MILLIGRAM, QD
     Route: 042
     Dates: start: 20211026, end: 20211026
  11. MODURETIC 5-50 [Concomitant]
     Active Substance: AMILORIDE HYDROCHLORIDE\HYDROCHLOROTHIAZIDE
     Indication: Hypertension
     Dosage: UNK, QD; 1 UNK, QD (5+50 MG (5 MG,1 IN 1 D)
     Route: 048
     Dates: start: 20150101
  12. MODURETIC 5-50 [Concomitant]
     Active Substance: AMILORIDE HYDROCHLORIDE\HYDROCHLOROTHIAZIDE
     Dosage: 1 DOSAGE FORM, QD
     Route: 048
     Dates: start: 20150101
  13. HUMAN RED BLOOD CELL [Concomitant]
     Active Substance: HUMAN RED BLOOD CELL
     Indication: Anaemia
     Dosage: UNK
     Route: 042
     Dates: start: 20211010, end: 20211010
  14. HUMAN RED BLOOD CELL [Concomitant]
     Active Substance: HUMAN RED BLOOD CELL
     Dosage: UNK
     Route: 042
     Dates: start: 20211025, end: 20211025
  15. HUMAN RED BLOOD CELL [Concomitant]
     Active Substance: HUMAN RED BLOOD CELL
     Dosage: UNK
     Route: 042
     Dates: start: 20211020, end: 20211020
  16. SODIUM CHLORIDE [Concomitant]
     Active Substance: SODIUM CHLORIDE
     Indication: Product used for unknown indication
     Dosage: 2340 MILLIGRAM, QD
     Route: 042
     Dates: start: 20211021, end: 20211021
  17. SODIUM CHLORIDE [Concomitant]
     Active Substance: SODIUM CHLORIDE
     Dosage: 2340 MILLIGRAM, QD
     Route: 042
     Dates: start: 20211022, end: 20211022
  18. SODIUM CHLORIDE [Concomitant]
     Active Substance: SODIUM CHLORIDE
     Dosage: 2340 MILLIGRAM, QD
     Route: 042
     Dates: start: 20211025, end: 20211025
  19. SODIUM CHLORIDE [Concomitant]
     Active Substance: SODIUM CHLORIDE
     Dosage: 2340 MILLIGRAM, QD
     Route: 042
     Dates: start: 20211026, end: 20211026
  20. SODIUM CHLORIDE [Concomitant]
     Active Substance: SODIUM CHLORIDE
     Dosage: UNK
     Route: 042
     Dates: start: 20211116, end: 20211119
  21. SODIUM CHLORIDE [Concomitant]
     Active Substance: SODIUM CHLORIDE
     Dosage: 60 MILLIEQUIVALENT, QD
     Route: 065
  22. SODIUM CHLORIDE [Concomitant]
     Active Substance: SODIUM CHLORIDE
     Dosage: UNK
     Route: 042
     Dates: start: 20211112, end: 20211112
  23. HUMAN PLATELET, ALLOGENIC [Concomitant]
     Active Substance: HUMAN PLATELET, ALLOGENIC
     Indication: Thrombocytopenia
     Dosage: UNK
     Route: 042
     Dates: start: 20211102, end: 20211102
  24. HUMAN PLATELET, ALLOGENIC [Concomitant]
     Active Substance: HUMAN PLATELET, ALLOGENIC
     Dosage: UNK
     Route: 042
     Dates: start: 20211108, end: 20211108
  25. HUMAN PLATELET, ALLOGENIC [Concomitant]
     Active Substance: HUMAN PLATELET, ALLOGENIC
     Dosage: UNK
     Route: 042
     Dates: start: 20211019, end: 20211019
  26. MESALAMINE [Concomitant]
     Active Substance: MESALAMINE
     Indication: Haemorrhoids
     Dosage: 1 DOSAGE FORM
     Route: 054
     Dates: start: 20211029
  27. POLYETHYLENE GLYCOL 3350\POTASSIUM CHLORIDE\SODIUM BICARBONATE\SODIUM [Concomitant]
     Active Substance: POLYETHYLENE GLYCOL 3350\POTASSIUM CHLORIDE\SODIUM BICARBONATE\SODIUM CHLORIDE
     Indication: Product used for unknown indication
     Dosage: UNK
     Route: 065
  28. SODIUM [Concomitant]
     Active Substance: SODIUM
     Indication: Hyponatraemia
     Dosage: 0.9 PERCENT, PRN
     Route: 042
     Dates: start: 20211018, end: 20211019
  29. PIPERACILLIN SODIUM\TAZOBACTAM SODIUM [Concomitant]
     Active Substance: PIPERACILLIN SODIUM\TAZOBACTAM SODIUM
     Indication: Product used for unknown indication
     Dosage: UNK UNK, TID; 4 G/ 0.5 G, TID
     Route: 042
     Dates: start: 20211117, end: 20211119
  30. PIPERACILLIN SODIUM\TAZOBACTAM SODIUM [Concomitant]
     Active Substance: PIPERACILLIN SODIUM\TAZOBACTAM SODIUM
     Dosage: UNK; 4 G/0.5G ONCE/SINGLE
     Route: 042
     Dates: start: 20211120, end: 20211120
  31. PIPERACILLIN SODIUM\TAZOBACTAM SODIUM [Concomitant]
     Active Substance: PIPERACILLIN SODIUM\TAZOBACTAM SODIUM
     Dosage: UNK UNK, TID; 4 G/ 0.5 G, TID
     Route: 042
     Dates: start: 20211117, end: 20211119
  32. SENNA [Concomitant]
     Active Substance: SENNA LEAF\SENNOSIDES\SENNOSIDES A AND B
     Indication: Constipation
     Dosage: 2 DOSAGE FORM, SINGLE
     Route: 048
     Dates: start: 20211119, end: 20211119
  33. Pursennid [Concomitant]
     Indication: Product used for unknown indication
     Dosage: 2 DOSAGE FORM, SINGLE
     Route: 048
     Dates: start: 20211119, end: 20211119
  34. VALDERMA [Concomitant]
     Indication: Haemorrhoids
     Dosage: UNK
     Route: 048
     Dates: start: 20211029
  35. PROCTOLYN [Concomitant]
     Indication: Haemorrhoids
     Dosage: UNK; 0.1+10 MG (3 IN 1 D)
     Route: 061
     Dates: start: 20211021, end: 20211028
  36. PROCTOLYN [Concomitant]
     Dosage: UNK; 3 UNK, QD (0.1+10 MG (3 IN 1 D)
     Route: 061
     Dates: start: 20211021, end: 20211028
  37. MEROPENEM [Concomitant]
     Active Substance: MEROPENEM
     Indication: Pneumonia
     Dosage: 1000 MILLIGRAM, TID
     Route: 042
     Dates: start: 20210916, end: 20210921
  38. OMEPRAZOLE [Concomitant]
     Active Substance: OMEPRAZOLE
     Indication: Prophylaxis
     Dosage: 20 GRAM, QD
     Route: 048
     Dates: start: 20190101
  39. Zinc Oxide, Salicylic Acid [Concomitant]
     Indication: Haemorrhoids
     Dosage: UNK
     Route: 061
     Dates: start: 20211029
  40. OXYGEN [Concomitant]
     Active Substance: OXYGEN
     Indication: Product used for unknown indication
     Dosage: UNK; 1 TO 2 LITRES PER MINUTE AS NEEDED
     Route: 065
     Dates: start: 20211117, end: 20211117
  41. OXYGEN [Concomitant]
     Active Substance: OXYGEN
     Dosage: UNK; 4 LITRES PER MINUTE AS NEEDED
     Route: 065
     Dates: start: 20211120
  42. OXYGEN [Concomitant]
     Active Substance: OXYGEN
     Dosage: UNK; 3 LITRES PER MINUTE AS NEEDED
     Route: 065
     Dates: start: 20211118, end: 20211119
  43. COVID-19 VACCINE [Concomitant]
     Indication: COVID-19 immunisation
     Dosage: UNK
     Route: 030
     Dates: start: 20210314, end: 20210314
  44. HYDROXYUREA [Concomitant]
     Active Substance: HYDROXYUREA
     Indication: Acute myeloid leukaemia
     Dosage: 500 MILLIGRAM, BID
     Route: 048
     Dates: start: 20210906, end: 20211017
  45. ACYCLOVIR [Concomitant]
     Active Substance: ACYCLOVIR
     Indication: Prophylaxis
     Dosage: 800 MILLIGRAM, QD
     Route: 048
     Dates: start: 20190101, end: 20211114

REACTIONS (21)
  - Drug-induced liver injury [Fatal]
  - Acute myeloid leukaemia [Fatal]
  - Pneumonia [Fatal]
  - Blood lactate dehydrogenase increased [Fatal]
  - Aspartate aminotransferase increased [Fatal]
  - Blood alkaline phosphatase increased [Fatal]
  - Blood bilirubin increased [Fatal]
  - Renal disorder [Fatal]
  - Hyponatraemia [Fatal]
  - Hypokalaemia [Fatal]
  - Tachycardia [Fatal]
  - Neutropenia [Fatal]
  - Thrombocytopenia [Fatal]
  - Anaemia [Fatal]
  - Constipation [Fatal]
  - Pain [Fatal]
  - Infection [Fatal]
  - Asthenia [Fatal]
  - Nausea [Fatal]
  - Vomiting [Fatal]
  - Diarrhoea [Fatal]

NARRATIVE: CASE EVENT DATE: 20210811
